FAERS Safety Report 4846560-8 (Version None)
Quarter: 2005Q4

REPORT INFORMATION
  Report Type: 
  Country: None (occurrence: None)
  Receive Date: 20051202
  Receipt Date: 20051118
  Transmission Date: 20060501
  Serious: Yes (Other)
  Sender: FDA-Public Use
  Company Number: KII-2005-0019825

PATIENT
  Age: 44 Year
  Sex: Male

DRUGS (2)
  1. OXYCONTIN [Suspect]
     Indication: INTENTIONAL DRUG MISUSE
     Dosage: PARENTERAL
     Route: 051
  2. METHADONE HCL [Suspect]

REACTIONS (5)
  - ANGER [None]
  - COMA [None]
  - DRUG ABUSER [None]
  - OVERDOSE [None]
  - OXYGEN SATURATION DECREASED [None]
